FAERS Safety Report 4756148-5 (Version None)
Quarter: 2005Q3

REPORT INFORMATION
  Report Type: 
  Country: None (occurrence: None)
  Receive Date: 20050826
  Receipt Date: 20041215
  Transmission Date: 20060218
  Serious: Yes (Death)
  Sender: FDA-Public Use
  Company Number: USA-2004-0018013

PATIENT
  Age: 10 Year
  Sex: Male
  Weight: 36.3 kg

DRUGS (3)
  1. OXYCONTIN [Suspect]
  2. CITALOPRAM (CITALOPRAM) [Suspect]
  3. AMPHETAMINE SULFATE TAB [Suspect]

REACTIONS (1)
  - OVERDOSE [None]
